FAERS Safety Report 7209104-1 (Version None)
Quarter: 2010Q4

REPORT INFORMATION
  Report Type: 
  Country: None (occurrence: None)
  Receive Date: 20101209
  Receipt Date: 20101209
  Transmission Date: 20110411
  Serious: No
  Sender: FDA-Public Use
  Company Number: None

PATIENT
  Age: 11 Year
  Sex: Male
  Weight: 27 kg

DRUGS (6)
  1. NIFURTIMOX 120MG TABS [Suspect]
     Indication: NEUROBLASTOMA RECURRENT
     Dosage: 30MG/KG/DAY PO DIV TID
     Dates: start: 20101119
  2. CYCLOPHOSPHAMIDE [Concomitant]
  3. TOPOTECAN [Concomitant]
  4. DOPAMINE [Concomitant]
  5. VANCOMYCIN [Concomitant]
  6. CEFTAZIDIME [Concomitant]

REACTIONS (3)
  - HYPOTENSION [None]
  - NEUTROPENIA [None]
  - PYREXIA [None]
